FAERS Safety Report 8001335-6 (Version None)
Quarter: 2011Q4

REPORT INFORMATION
  Report Type: 
  Country: None (occurrence: None)
  Receive Date: 20111123
  Receipt Date: 20111028
  Transmission Date: 20120403
  Serious: No
  Sender: FDA-Public Use
  Company Number: 336548

PATIENT
  Age: 57 Year
  Sex: Female

DRUGS (1)
  1. VICTOZA [Suspect]
     Indication: TYPE 2 DIABETES MELLITUS
     Dosage: ,SUBCUTANEOUS
     Route: 058

REACTIONS (3)
  - NAUSEA [None]
  - ERUCTATION [None]
  - PRODUCT COLOUR ISSUE [None]
